FAERS Safety Report 5757834-0 (Version None)
Quarter: 2008Q2

REPORT INFORMATION
  Report Type: 
  Country: None (occurrence: None)
  Receive Date: 20080603
  Receipt Date: 20080526
  Transmission Date: 20081010
  Serious: Yes (Hospitalization)
  Sender: FDA-Public Use
  Company Number: PHHO2008DE04506

PATIENT
  Sex: Male

DRUGS (3)
  1. CYCLOSPORINE [Suspect]
     Indication: LIVER TRANSPLANT
     Dosage: 200 MG, BID
     Route: 048
     Dates: start: 20080403
  2. NO TREATMENT RECEIVED NOMED [Suspect]
     Indication: LIVER TRANSPLANT
  3. BASILIXIMAB [Concomitant]

REACTIONS (4)
  - BLOOD CREATININE INCREASED [None]
  - NEPHROPATHY TOXIC [None]
  - WOUND CLOSURE [None]
  - WOUND DEHISCENCE [None]
